FAERS Safety Report 15204778 (Version 4)
Quarter: 2018Q4

REPORT INFORMATION
  Report Type: Spontaneous
  Country: US (occurrence: US)
  Receive Date: 20180726
  Receipt Date: 20181227
  Transmission Date: 20190204
  Serious: No
  Sender: FDA-Public Use
  Company Number: US-JAZZ-2018-US-010968

PATIENT
  Sex: Male
  Weight: 64.4 kg

DRUGS (1)
  1. PRIALT [Suspect]
     Active Substance: ZICONOTIDE ACETATE
     Indication: PAIN
     Dosage: 0.042 ?G, QH
     Route: 037

REACTIONS (4)
  - Dehydration [Unknown]
  - Micturition frequency decreased [Unknown]
  - Blood pressure decreased [Unknown]
  - Constipation [Unknown]
